FAERS Safety Report 19614764 (Version 1)
Quarter: 2021Q3

REPORT INFORMATION
  Report Type: Spontaneous
  Country: US (occurrence: US)
  Receive Date: 20210727
  Receipt Date: 20210727
  Transmission Date: 20211014
  Serious: No
  Sender: FDA-Public Use
  Company Number: US-GLAXOSMITHKLINE-USCH2021048265

PATIENT
  Age: 54 Year
  Sex: Female

DRUGS (1)
  1. ABREVA [Suspect]
     Active Substance: DOCOSANOL
     Indication: ORAL HERPES
     Dosage: UNK UNK, TID
     Dates: start: 20210714, end: 20210721

REACTIONS (3)
  - Condition aggravated [Recovering/Resolving]
  - Oral herpes [Recovering/Resolving]
  - Inappropriate schedule of product administration [Unknown]
